FAERS Safety Report 20732578 (Version 1)
Quarter: 2022Q2

REPORT INFORMATION
  Report Type: Spontaneous
  Country: IL (occurrence: IL)
  Receive Date: 20220420
  Receipt Date: 20220420
  Transmission Date: 20220721
  Serious: Yes (Other)
  Sender: FDA-Public Use
  Company Number: IL-TEVAIL-2022-IL-2026314

PATIENT
  Age: 46 Year
  Sex: Female

DRUGS (1)
  1. FULVESTRANT [Suspect]
     Active Substance: FULVESTRANT
     Route: 065

REACTIONS (10)
  - Injection site necrosis [Unknown]
  - Injection site swelling [Unknown]
  - Injection site pain [Unknown]
  - Sleep disorder [Unknown]
  - Impaired driving ability [Unknown]
  - Loss of personal independence in daily activities [Unknown]
  - Gait disturbance [Unknown]
  - Unevaluable event [Unknown]
  - Paraesthesia [Unknown]
  - Product storage error [Unknown]
